FAERS Safety Report 21344280 (Version 2)
Quarter: 2022Q4

REPORT INFORMATION
  Report Type: Report from Study
  Country: US (occurrence: US)
  Receive Date: 20220916
  Receipt Date: 20221213
  Transmission Date: 20230112
  Serious: No
  Sender: FDA-Public Use
  Company Number: US-NOVARTISTESTPH-NVSC2022US208586

PATIENT
  Age: 31 Year
  Sex: Female

DRUGS (1)
  1. KESIMPTA [Suspect]
     Active Substance: OFATUMUMAB
     Indication: Multiple sclerosis
     Dosage: UNK UNK, QMO
     Route: 058
     Dates: start: 20220812

REACTIONS (6)
  - Mood swings [Recovering/Resolving]
  - Disorganised speech [Recovering/Resolving]
  - Fatigue [Recovering/Resolving]
  - Sinusitis [Recovering/Resolving]
  - Rhinorrhoea [Recovering/Resolving]
  - Sinus congestion [Recovering/Resolving]

NARRATIVE: CASE EVENT DATE: 20220812
